FAERS Safety Report 11220227 (Version 1)
Quarter: 2015Q2

REPORT INFORMATION
  Report Type: Report from Study
  Country: US (occurrence: US)
  Receive Date: 20150625
  Receipt Date: 20150625
  Transmission Date: 20150821
  Serious: No
  Sender: FDA-Public Use
  Company Number: US-EXELIXIS-CABO-14004125

PATIENT
  Sex: Female
  Weight: 86 kg

DRUGS (13)
  1. AMBIEN [Concomitant]
     Active Substance: ZOLPIDEM TARTRATE
  2. LOVASTATIN. [Concomitant]
     Active Substance: LOVASTATIN
  3. TRAMADOL [Concomitant]
     Active Substance: TRAMADOL
  4. ZOFRAN [Concomitant]
     Active Substance: ONDANSETRON HYDROCHLORIDE
  5. LEVOTHYROXINE [Concomitant]
     Active Substance: LEVOTHYROXINE
  6. CELEXA [Concomitant]
     Active Substance: CITALOPRAM HYDROBROMIDE
  7. OXYCODONE [Concomitant]
     Active Substance: OXYCODONE
  8. METOPROLOL [Concomitant]
     Active Substance: METOPROLOL
  9. CABOZANTINIB [Suspect]
     Active Substance: CABOZANTINIB
     Dosage: 100 MG, QD
     Route: 048
     Dates: start: 20140509, end: 2014
  10. CABOZANTINIB [Suspect]
     Active Substance: CABOZANTINIB
     Dosage: 100 MG, QD
     Route: 048
     Dates: start: 20140424
  11. NORVASC [Concomitant]
     Active Substance: AMLODIPINE BESYLATE
  12. CABOZANTINIB [Suspect]
     Active Substance: CABOZANTINIB
     Indication: THYROID CANCER
     Dosage: 140 MG, QD
     Route: 048
     Dates: start: 20140302, end: 20140507
  13. CYCLOBENZAPRINE [Concomitant]
     Active Substance: CYCLOBENZAPRINE

REACTIONS (12)
  - Malaise [Unknown]
  - Stomatitis [Unknown]
  - Hypertension [Unknown]
  - Acne [Unknown]
  - Nausea [Unknown]
  - Hair colour changes [Not Recovered/Not Resolved]
  - Nasal congestion [Unknown]
  - Sinusitis [Unknown]
  - Diarrhoea [Not Recovered/Not Resolved]
  - Pain [Unknown]
  - Nasopharyngitis [Unknown]
  - Influenza [Unknown]

NARRATIVE: CASE EVENT DATE: 2014
